FAERS Safety Report 7019831-7 (Version None)
Quarter: 2010Q3

REPORT INFORMATION
  Report Type: 
  Country: None (occurrence: None)
  Receive Date: 20100929
  Receipt Date: 20100924
  Transmission Date: 20110219
  Serious: Yes (Death)
  Sender: FDA-Public Use
  Company Number: US-BRISTOL-MYERS SQUIBB COMPANY-15301567

PATIENT
  Age: 56 Year
  Sex: Male
  Weight: 121 kg

DRUGS (4)
  1. ERBITUX [Suspect]
     Indication: OESOPHAGEAL ADENOCARCINOMA
     Dosage: 250MG/M2 IV ONCE A WEEK:6WEEKS,
     Route: 042
     Dates: start: 20100810, end: 20100914
  2. CISPLATIN [Suspect]
     Indication: OESOPHAGEAL ADENOCARCINOMA
     Dosage: 25MG/M2:ONCE A WEEK :6 WEEKS DOSE ADJUSTED DAY 22  RETURNED TO FULL DOSE DAY 29
     Dates: start: 20100810, end: 20100914
  3. TAXOL [Suspect]
     Indication: OESOPHAGEAL ADENOCARCINOMA
     Dosage: 50MG/M2 IV ONCE A WEEK :6WKS.
     Route: 042
     Dates: start: 20100810, end: 20100914
  4. RADIATION THERAPY [Suspect]
     Indication: OESOPHAGEAL ADENOCARCINOMA
     Dosage: DURA:28DYS EXTERNAL BEAM:3D 1DF:54.32 GY NO OF FRACTIONS: 27 NO OF ELASPSED DAYS: 39
     Dates: start: 20100810, end: 20100917

REACTIONS (1)
  - MYOCARDIAL INFARCTION [None]
